FAERS Safety Report 6458246-7 (Version None)
Quarter: 2009Q4

REPORT INFORMATION
  Report Type: 
  Country: None (occurrence: None)
  Receive Date: 20091125
  Receipt Date: 20091120
  Transmission Date: 20100525
  Serious: Yes (Hospitalization, Other)
  Sender: FDA-Public Use
  Company Number: US-MERCK-0908USA03739

PATIENT
  Age: 62 Year
  Sex: Male

DRUGS (4)
  1. FOSAMAX [Suspect]
     Indication: OSTEOPENIA
     Route: 048
     Dates: start: 20011001, end: 20071114
  2. FOSAMAX [Suspect]
     Indication: OSTEOPOROSIS
     Route: 048
     Dates: start: 20011001, end: 20071114
  3. TEGRETOL [Concomitant]
     Indication: ARTERIOVENOUS MALFORMATION
     Route: 065
     Dates: start: 19910101
  4. PHENOBARBITAL [Concomitant]
     Indication: ARTERIOVENOUS MALFORMATION
     Route: 065
     Dates: start: 19910101

REACTIONS (15)
  - ADVERSE EVENT [None]
  - ANAEMIA [None]
  - BLOOD TESTOSTERONE DECREASED [None]
  - COLON CANCER [None]
  - EXOSTOSIS [None]
  - JAW FRACTURE [None]
  - OSTEOMYELITIS [None]
  - OSTEONECROSIS [None]
  - PERIODONTAL DISEASE [None]
  - TEMPOROMANDIBULAR JOINT SYNDROME [None]
  - TONGUE NEOPLASM MALIGNANT STAGE UNSPECIFIED [None]
  - TOOTH DISORDER [None]
  - TOOTH FRACTURE [None]
  - TOOTH INFECTION [None]
  - TRISMUS [None]
